FAERS Safety Report 14525990 (Version 4)
Quarter: 2018Q1

REPORT INFORMATION
  Report Type: Spontaneous
  Country: US (occurrence: US)
  Receive Date: 20180213
  Receipt Date: 20180326
  Transmission Date: 20180509
  Serious: Yes (Other)
  Sender: FDA-Public Use
  Company Number: US-PFIZER INC-2018062038

PATIENT
  Age: 81 Year
  Sex: Female
  Weight: 51.25 kg

DRUGS (2)
  1. IBRANCE [Suspect]
     Active Substance: PALBOCICLIB
     Indication: BREAST CANCER METASTATIC
     Dosage: 100 MG, CYCLIC (DAY 1-21 Q 28 DAYS)
     Route: 048
     Dates: start: 201712
  2. IBRANCE [Suspect]
     Active Substance: PALBOCICLIB
     Dosage: 100 MG, CYCLIC (1 DAILY FOR 21 DAYS, THEN 7 OFF)
     Route: 048

REACTIONS (11)
  - Abdominal discomfort [Unknown]
  - Flatulence [Recovering/Resolving]
  - Haematochezia [Recovered/Resolved]
  - Diarrhoea [Unknown]
  - Constipation [Unknown]
  - Dry mouth [Unknown]
  - Pelvic discomfort [Unknown]
  - White blood cell count decreased [Unknown]
  - Asthenia [Unknown]
  - Abdominal pain [Unknown]
  - Malaise [Unknown]

NARRATIVE: CASE EVENT DATE: 20180212
